FAERS Safety Report 19210899 (Version 1)
Quarter: 2021Q2

REPORT INFORMATION
  Report Type: Spontaneous
  Country: US (occurrence: US)
  Receive Date: 20210501
  Receipt Date: 20210501
  Transmission Date: 20210717
  Serious: Yes (Other)
  Sender: FDA-Public Use
  Company Number: US-ASTRAZENECA-2021A353969

PATIENT
  Sex: Male

DRUGS (3)
  1. CLONODINE [Concomitant]
     Active Substance: CLONIDINE
  2. ZOLOFT [Concomitant]
     Active Substance: SERTRALINE HYDROCHLORIDE
  3. SEROQUEL [Suspect]
     Active Substance: QUETIAPINE FUMARATE
     Dosage: GENERIC100.0MG UNKNOWN
     Route: 065

REACTIONS (6)
  - Confusional state [Unknown]
  - Memory impairment [Unknown]
  - Psychotic disorder [Unknown]
  - Drug abuse [Unknown]
  - Intentional product misuse [Unknown]
  - Insomnia [Unknown]
